FAERS Safety Report 22011338 (Version 1)
Quarter: 2023Q1

REPORT INFORMATION
  Report Type: Spontaneous
  Country: CA (occurrence: CA)
  Receive Date: 20230220
  Receipt Date: 20230220
  Transmission Date: 20230418
  Serious: Yes (Hospitalization)
  Sender: FDA-Public Use
  Company Number: CA-TEVA-2023-CA-2856472

PATIENT
  Sex: Male

DRUGS (1)
  1. MESALAMINE [Suspect]
     Active Substance: MESALAMINE
     Indication: Product used for unknown indication
     Dosage: 8 DOSAGE FORMS DAILY;
     Route: 065

REACTIONS (3)
  - Abdominal discomfort [Unknown]
  - Gastrointestinal pain [Unknown]
  - Prescribed overdose [Unknown]
